FAERS Safety Report 9220829 (Version 2)
Quarter: 2013Q2

REPORT INFORMATION
  Report Type: Spontaneous
  Country: BR (occurrence: BR)
  Receive Date: 20130409
  Receipt Date: 20130524
  Transmission Date: 20140414
  Serious: No
  Sender: FDA-Public Use
  Company Number: BR-ABBOTT-13X-020-1072882-00

PATIENT
  Sex: Female
  Weight: 28 kg

DRUGS (4)
  1. DEPAKENE [Suspect]
     Indication: CEREBRAL PALSY
     Route: 048
     Dates: start: 201302
  2. DEPAKENE [Suspect]
     Route: 048
  3. DEPAKENE [Suspect]
     Indication: PRODUCT USED FOR UNKNOWN INDICATION
     Dosage: PHYSICIAN PRESCRIBED 4 TABLETS OF 250 MG PER DAY/ DAILY DOSE: 1000 MG.
  4. RIVOTRIL [Concomitant]
     Indication: SLEEP DISORDER THERAPY
     Route: 048

REACTIONS (3)
  - Drug dose omission [Unknown]
  - Vomiting [Not Recovered/Not Resolved]
  - Product taste abnormal [Unknown]
